FAERS Safety Report 19889952 (Version 1)
Quarter: 2021Q3

REPORT INFORMATION
  Report Type: Report from Study
  Country: US (occurrence: NO)
  Receive Date: 20210927
  Receipt Date: 20210927
  Transmission Date: 20211014
  Serious: Yes (Other)
  Sender: FDA-Public Use
  Company Number: US-TAKEDA-2021TUS057598

PATIENT
  Age: 12 Year
  Sex: Male

DRUGS (24)
  1. TEDUGLUTIDE [Suspect]
     Active Substance: TEDUGLUTIDE
     Dosage: 1.60 MILLIGRAM, QD
     Route: 065
     Dates: start: 20190828
  2. GENTAMICIN. [Concomitant]
     Active Substance: GENTAMICIN
     Indication: OVERGROWTH BACTERIAL
     Dosage: 100 MILLIGRAM, QD
     Route: 048
     Dates: start: 20110927
  3. TEDUGLUTIDE [Suspect]
     Active Substance: TEDUGLUTIDE
     Dosage: 1.35 MILLIGRAM, QD
     Route: 065
     Dates: start: 20170504, end: 20180911
  4. TEDUGLUTIDE [Suspect]
     Active Substance: TEDUGLUTIDE
     Dosage: 1.60 MILLIGRAM, QD
     Route: 065
     Dates: start: 20190828
  5. TEDUGLUTIDE [Suspect]
     Active Substance: TEDUGLUTIDE
     Dosage: 1.60 MILLIGRAM, QD
     Route: 065
     Dates: start: 20190828
  6. TEDUGLUTIDE [Suspect]
     Active Substance: TEDUGLUTIDE
     Dosage: 1.80 MILLIGRAM, QD
     Route: 065
     Dates: start: 20210616
  7. TEDUGLUTIDE [Suspect]
     Active Substance: TEDUGLUTIDE
     Dosage: 1.80 MILLIGRAM, QD
     Route: 065
     Dates: start: 20210616
  8. METRONIDAZOLE. [Concomitant]
     Active Substance: METRONIDAZOLE
     Indication: OVERGROWTH BACTERIAL
     Dosage: 100 MILLIGRAM, TID
     Route: 048
     Dates: start: 20110920
  9. TEDUGLUTIDE [Suspect]
     Active Substance: TEDUGLUTIDE
     Indication: SHORT-BOWEL SYNDROME
     Dosage: 1.35 MILLIGRAM, QD
     Route: 065
     Dates: start: 20170504
  10. OMACOR [Concomitant]
     Active Substance: OMEGA-3-ACID ETHYL ESTERS
     Indication: ANASTOMOTIC ULCER
     Dosage: 1 DOSAGE FORM, BID
     Route: 048
     Dates: start: 20130212
  11. TEDUGLUTIDE [Suspect]
     Active Substance: TEDUGLUTIDE
     Indication: SHORT-BOWEL SYNDROME
     Dosage: 1.35 MILLIGRAM, QD
     Route: 065
     Dates: start: 20170504
  12. TEDUGLUTIDE [Suspect]
     Active Substance: TEDUGLUTIDE
     Dosage: 1.35 MILLIGRAM, QD
     Route: 065
     Dates: start: 20170504, end: 20180911
  13. TEDUGLUTIDE [Suspect]
     Active Substance: TEDUGLUTIDE
     Dosage: 1.40 MILLIGRAM, QD
     Route: 065
     Dates: start: 20180912, end: 20190827
  14. TEDUGLUTIDE [Suspect]
     Active Substance: TEDUGLUTIDE
     Dosage: 1.80 MILLIGRAM, QD
     Route: 065
     Dates: start: 20210616
  15. TEDUGLUTIDE [Suspect]
     Active Substance: TEDUGLUTIDE
     Dosage: 1.35 MILLIGRAM, QD
     Route: 065
     Dates: start: 20170504, end: 20180911
  16. TEDUGLUTIDE [Suspect]
     Active Substance: TEDUGLUTIDE
     Dosage: 1.40 MILLIGRAM, QD
     Route: 065
     Dates: start: 20180912, end: 20190827
  17. TEDUGLUTIDE [Suspect]
     Active Substance: TEDUGLUTIDE
     Dosage: 1.40 MILLIGRAM, QD
     Route: 065
     Dates: start: 20180912, end: 20190827
  18. TEDUGLUTIDE [Suspect]
     Active Substance: TEDUGLUTIDE
     Dosage: 1.60 MILLIGRAM, QD
     Route: 065
     Dates: start: 20190828
  19. TEDUGLUTIDE [Suspect]
     Active Substance: TEDUGLUTIDE
     Indication: SHORT-BOWEL SYNDROME
     Dosage: 1.35 MILLIGRAM, QD
     Route: 065
     Dates: start: 20170504
  20. TEDUGLUTIDE [Suspect]
     Active Substance: TEDUGLUTIDE
     Dosage: 1.35 MILLIGRAM, QD
     Route: 065
     Dates: start: 20170504, end: 20180911
  21. TEDUGLUTIDE [Suspect]
     Active Substance: TEDUGLUTIDE
     Dosage: 1.40 MILLIGRAM, QD
     Route: 065
     Dates: start: 20180912, end: 20190827
  22. AMOXICILLIN. [Concomitant]
     Active Substance: AMOXICILLIN
     Indication: OVERGROWTH BACTERIAL
     Dosage: 100 MILLIGRAM, TID
     Route: 048
     Dates: start: 20111118
  23. TEDUGLUTIDE [Suspect]
     Active Substance: TEDUGLUTIDE
     Indication: SHORT-BOWEL SYNDROME
     Dosage: 1.35 MILLIGRAM, QD
     Route: 065
     Dates: start: 20170504
  24. TEDUGLUTIDE [Suspect]
     Active Substance: TEDUGLUTIDE
     Dosage: 1.80 MILLIGRAM, QD
     Route: 065
     Dates: start: 20210616

REACTIONS (1)
  - Rectal haemorrhage [Recovered/Resolved]

NARRATIVE: CASE EVENT DATE: 20200128
